FAERS Safety Report 8525472 (Version 3)
Quarter: 2013Q1

REPORT INFORMATION
  Report Type: Report from Study
  Country: US (occurrence: US)
  Receive Date: 20120423
  Receipt Date: 20130103
  Transmission Date: 20140127
  Serious: Yes (Other)
  Sender: FDA-Public Use
  Company Number: US-ASTRAZENECA-2012SE24653

PATIENT
  Age: 76 Year
  Sex: Male

DRUGS (5)
  1. RHINOCORT AQUA [Suspect]
     Route: 045
  2. NEXIUM [Suspect]
     Route: 048
  3. CRESTOR [Suspect]
     Route: 048
  4. PRAVACHOL [Concomitant]
  5. FLOMAX [Concomitant]

REACTIONS (3)
  - Renal failure [Unknown]
  - Prostate cancer [Unknown]
  - Renal disorder [Unknown]
